FAERS Safety Report 6507536-8 (Version None)
Quarter: 2009Q4

REPORT INFORMATION
  Report Type: 
  Country: None (occurrence: None)
  Receive Date: 20091216
  Receipt Date: 20091130
  Transmission Date: 20100525
  Serious: Yes (Hospitalization)
  Sender: FDA-Public Use
  Company Number: DSA_42109_2009

PATIENT
  Sex: Male

DRUGS (20)
  1. LORAZEPAM [Suspect]
     Indication: DRUG USE FOR UNKNOWN INDICATION
     Dosage: DF
  2. OXALIPLATIN [Suspect]
     Indication: COLORECTAL CANCER
     Dosage: DF INTRAVENOUS DRIP, (DF INTRAVENOUS DRIP)
     Route: 041
     Dates: start: 20090424, end: 20090424
  3. OXALIPLATIN [Suspect]
     Indication: COLORECTAL CANCER
     Dosage: DF INTRAVENOUS DRIP, (DF INTRAVENOUS DRIP)
     Route: 041
     Dates: start: 20090513, end: 20090513
  4. INVESTIGATIONAL DRUG (INVESTIGATIONAL DRUG) [Suspect]
     Indication: COLORECTAL CANCER
     Dosage: DF INTRAVENOUS (NOT OTHERWISE SPECIFIED), (DF INTRAVENOUS (NOT OTHERWISE SPECIFIED)
     Route: 042
     Dates: start: 20090424, end: 20090424
  5. INVESTIGATIONAL DRUG (INVESTIGATIONAL DRUG) [Suspect]
     Indication: COLORECTAL CANCER
     Dosage: DF INTRAVENOUS (NOT OTHERWISE SPECIFIED), (DF INTRAVENOUS (NOT OTHERWISE SPECIFIED)
     Route: 042
     Dates: start: 20090511, end: 20090511
  6. FOLINIC ACID [Suspect]
     Indication: COLORECTAL CANCER
     Dosage: DF INTRAVENOUS (NOT OTHERWISE SPECIFIED), (DF INTRAVENOUS (NOT OTHERWISE SPECIFIED)
     Route: 042
     Dates: start: 20090424, end: 20090424
  7. FOLINIC ACID [Suspect]
     Indication: COLORECTAL CANCER
     Dosage: DF INTRAVENOUS (NOT OTHERWISE SPECIFIED), (DF INTRAVENOUS (NOT OTHERWISE SPECIFIED)
     Route: 042
     Dates: start: 20090513, end: 20090513
  8. FLUOROURACIL [Suspect]
     Indication: COLORECTAL CANCER
     Dosage: DF INTRAVENOUS (NOT OTHERWISE SPECIFIED), (DF INTRAVENOUS  (NOT OTHERWISE SPECIFIED)
     Route: 042
     Dates: start: 20090424, end: 20090424
  9. FLUOROURACIL [Suspect]
     Indication: COLORECTAL CANCER
     Dosage: DF INTRAVENOUS (NOT OTHERWISE SPECIFIED), (DF INTRAVENOUS  (NOT OTHERWISE SPECIFIED)
     Route: 042
     Dates: start: 20090513, end: 20090513
  10. BEVACIZUMAB [Suspect]
     Indication: COLORECTAL CANCER
     Dosage: 5 MG UNSPECIFIED INTRAVENOUS (NOT OTHERWISE SPECIFIED, (5 MG,  UNSPECIFIED (NOT OTHERWISE SPECIFIED)
     Route: 042
     Dates: start: 20090424, end: 20090424
  11. BEVACIZUMAB [Suspect]
     Indication: COLORECTAL CANCER
     Dosage: 5 MG UNSPECIFIED INTRAVENOUS (NOT OTHERWISE SPECIFIED, (5 MG,  UNSPECIFIED (NOT OTHERWISE SPECIFIED)
     Route: 042
     Dates: start: 20090511, end: 20090511
  12. ONDANSETRON [Suspect]
     Indication: DRUG USE FOR UNKNOWN INDICATION
     Dosage: DF
  13. PROCHLORPERAZINE [Suspect]
     Indication: DRUG USE FOR UNKNOWN INDICATION
     Dosage: DF
  14. CIPROFLOXACIN [Concomitant]
  15. FLUDROCORTISONE [Concomitant]
  16. PANCREATIN [Concomitant]
  17. ASPIRIN [Concomitant]
  18. ATORVASTATIN CALCIUM [Concomitant]
  19. CALCIUM [Concomitant]
  20. INSULIN [Concomitant]

REACTIONS (11)
  - BLOOD ALBUMIN DECREASED [None]
  - BLOOD CALCIUM DECREASED [None]
  - BLOOD GLUCOSE INCREASED [None]
  - BLOOD POTASSIUM DECREASED [None]
  - FATIGUE [None]
  - KLEBSIELLA INFECTION [None]
  - NAUSEA [None]
  - PREALBUMIN DECREASED [None]
  - RED BLOOD CELLS URINE POSITIVE [None]
  - URINARY TRACT INFECTION [None]
  - WHITE BLOOD CELL COUNT INCREASED [None]
